FAERS Safety Report 9842270 (Version 2)
Quarter: 2014Q1

REPORT INFORMATION
  Report Type: Report from Study
  Country: CA (occurrence: CA)
  Receive Date: 20140124
  Receipt Date: 20140224
  Transmission Date: 20141002
  Serious: Yes (Other)
  Sender: FDA-Public Use
  Company Number: CA-JNJFOC-20140111283

PATIENT
  Sex: Female

DRUGS (9)
  1. REMICADE [Suspect]
     Indication: CROHN^S DISEASE
     Route: 042
     Dates: start: 20140108
  2. REMICADE [Suspect]
     Indication: CROHN^S DISEASE
     Route: 042
     Dates: start: 20130108
  3. AMOXIL [Concomitant]
     Indication: FISTULA
     Route: 065
  4. ALPRAZOLAM [Concomitant]
     Route: 065
  5. METHOTREXATE [Concomitant]
     Route: 048
  6. ZOPICLONE [Concomitant]
     Route: 065
  7. GRAVOL [Concomitant]
     Route: 048
  8. OMEPRAZOLE [Concomitant]
     Route: 048
  9. DILAUDID [Concomitant]
     Route: 065

REACTIONS (5)
  - Urinary tract infection [Unknown]
  - Intestinal obstruction [Recovered/Resolved]
  - Vulvovaginal pain [Unknown]
  - Vaginal discharge [Unknown]
  - Fistula [Unknown]
